FAERS Safety Report 7313058-7 (Version None)
Quarter: 2011Q1

REPORT INFORMATION
  Report Type: 
  Country: None (occurrence: None)
  Receive Date: 20110225
  Receipt Date: 20110216
  Transmission Date: 20110831
  Serious: No
  Sender: FDA-Public Use
  Company Number: US-BIOGENIDEC-2010BI026197

PATIENT
  Age: 50 Year
  Sex: Male

DRUGS (2)
  1. TYSABRI [Suspect]
     Indication: MULTIPLE SCLEROSIS
     Route: 042
     Dates: start: 20090311, end: 20100126
  2. COUMADIN [Concomitant]
     Indication: THROMBOSIS

REACTIONS (3)
  - ENERGY INCREASED [None]
  - FATIGUE [None]
  - MENTAL IMPAIRMENT [None]
